FAERS Safety Report 5948462-2 (Version None)
Quarter: 2008Q4

REPORT INFORMATION
  Report Type: 
  Country: None (occurrence: None)
  Receive Date: 20081111
  Receipt Date: 20081104
  Transmission Date: 20090506
  Serious: Yes (Hospitalization, Congenital Anomaly)
  Sender: FDA-Public Use
  Company Number: A0702255A

PATIENT
  Sex: Female
  Weight: 0.8 kg

DRUGS (10)
  1. PAXIL CR [Suspect]
     Indication: ANXIETY
     Dates: start: 20030701
  2. VITAMIN TAB [Concomitant]
     Indication: PREGNANCY
  3. PREVACID [Concomitant]
     Indication: ILL-DEFINED DISORDER
     Dosage: 30MG TWICE PER DAY
     Dates: start: 20030801, end: 20031001
  4. FERTILITY TREATMENT [Concomitant]
     Indication: INFERTILITY
     Dosage: 100MG FOUR TIMES PER DAY
  5. CLINDAMYCIN HCL [Concomitant]
     Indication: INFECTION
     Dosage: 150MG FOUR TIMES PER DAY
     Dates: start: 20030301
  6. CLOBETASOL PROPIONATE [Concomitant]
     Indication: RASH
     Dates: start: 20030201
  7. MEDROL [Concomitant]
     Indication: INFECTION
     Dosage: 16MG PER DAY
     Dates: start: 20030101
  8. DOXYCYCLINE [Concomitant]
     Dosage: 100MG TWICE PER DAY
     Dates: start: 20030101
  9. FERTILITY TREATMENT [Concomitant]
     Dosage: 1000UNIT MONTHLY
     Dates: start: 20030101
  10. ALPRAZOLAM [Concomitant]
     Indication: ANXIETY
     Dosage: .25MG AS REQUIRED
     Dates: start: 20030301

REACTIONS (14)
  - ADJUSTMENT DISORDER [None]
  - ATRIAL SEPTAL DEFECT [None]
  - BRONCHOPULMONARY DYSPLASIA [None]
  - DEVELOPMENTAL DELAY [None]
  - DRUG EXPOSURE DURING PREGNANCY [None]
  - DYSMORPHISM [None]
  - EATING DISORDER [None]
  - HYDROCEPHALUS [None]
  - HYPOACUSIS [None]
  - PATENT DUCTUS ARTERIOSUS [None]
  - PERSISTENT FOETAL CIRCULATION [None]
  - PREMATURE BABY [None]
  - RETINOPATHY OF PREMATURITY [None]
  - TRISOMY 21 [None]
